FAERS Safety Report 4519343-6 (Version None)
Quarter: 2004Q4

REPORT INFORMATION
  Report Type: 
  Country: None (occurrence: None)
  Receive Date: 20041126
  Receipt Date: 20041119
  Transmission Date: 20050328
  Serious: Yes (Death)
  Sender: FDA-Public Use
  Company Number: HQWYE757714OCT04

PATIENT
  Age: 57 Year
  Sex: Male
  Weight: 95.34 kg

DRUGS (8)
  1. NEUMEGA [Suspect]
     Dosage: 4770 UG 1X PER 1 DAY, SUBCUTANEOUS
     Route: 058
     Dates: start: 20040925, end: 20040927
  2. IFOSFAMIDE [Concomitant]
  3. CYTARABINE [Concomitant]
  4. ETOPOSIDE [Concomitant]
  5. NEULASTA [Concomitant]
  6. MESNA [Concomitant]
  7. MESNA [Concomitant]
  8. ARANESP [Concomitant]

REACTIONS (6)
  - CARDIAC ARREST [None]
  - HAEMATOCRIT DECREASED [None]
  - HAEMOGLOBIN DECREASED [None]
  - RED BLOOD CELL COUNT DECREASED [None]
  - RED CELL DISTRIBUTION WIDTH INCREASED [None]
  - WHITE BLOOD CELL COUNT DECREASED [None]
